FAERS Safety Report 9159567 (Version 1)
Quarter: 2013Q1

REPORT INFORMATION
  Report Type: Spontaneous
  Country: US (occurrence: None)
  Receive Date: 20130312
  Receipt Date: 20130312
  Transmission Date: 20140127
  Serious: Yes (Hospitalization)
  Sender: FDA-Public Use
  Company Number: None

PATIENT
  Age: 6 Month
  Sex: Female
  Weight: 5.9 kg

DRUGS (3)
  1. OMNITROPE [Suspect]
     Indication: HYPOPITUITARISM
     Dosage: 0.2 MG UNDER THE SKIN DAILY
     Dates: start: 20130123
  2. LOVENOX [Concomitant]
  3. HYDROCORTISONE [Concomitant]

REACTIONS (3)
  - Convulsion [None]
  - Blood glucose decreased [None]
  - Therapy cessation [None]
